FAERS Safety Report 8256893-3 (Version None)
Quarter: 2012Q2

REPORT INFORMATION
  Report Type: 
  Country: None (occurrence: None)
  Receive Date: 20120403
  Receipt Date: 20120328
  Transmission Date: 20120825
  Serious: Yes (Hospitalization, Other)
  Sender: FDA-Public Use
  Company Number: US-AMGEN-USASP2012017890

PATIENT
  Age: 31 Year
  Sex: Male
  Weight: 75.5 kg

DRUGS (16)
  1. EPOGEN [Suspect]
     Dosage: 25000 IU, QWK
     Route: 058
     Dates: start: 20120202, end: 20120229
  2. ARANESP [Suspect]
     Indication: NEPHROGENIC ANAEMIA
     Dosage: UNK
     Dates: start: 20120201, end: 20120229
  3. EPOGEN [Suspect]
     Dosage: 31000 IU, QWK
     Route: 058
     Dates: start: 20120305
  4. RENVELA [Concomitant]
     Dosage: 800 MG, TID
     Route: 048
     Dates: start: 20101001
  5. HYDRALAZINE HCL [Concomitant]
     Dosage: 50 MG, TID
     Route: 048
     Dates: start: 20120103
  6. COZAAR [Concomitant]
     Dosage: 50 MG, QD
     Route: 048
     Dates: start: 20120206
  7. EPOGEN [Suspect]
     Indication: NEPHROGENIC ANAEMIA
     Dosage: 20000 IU, QWK
     Route: 058
     Dates: start: 20111206, end: 20120130
  8. NORVIR [Concomitant]
     Dosage: 100 MG, QD
     Route: 048
     Dates: start: 20091104
  9. RALTEGRAVIR [Concomitant]
     Dosage: 400 MG, UNK
     Route: 048
     Dates: start: 20091104
  10. LORTAB [Concomitant]
     Indication: PAIN
     Dosage: 1 UNK, Q6H
     Route: 048
     Dates: start: 20120103
  11. COMBIVENT [Concomitant]
     Dosage: 2 UNK, QID
  12. REYATAZ [Concomitant]
     Dosage: 300 MG, QD
     Route: 048
     Dates: start: 20091104
  13. ERGOCALCIFEROL [Concomitant]
     Dosage: 50000 IU, Q2WK
     Route: 048
     Dates: start: 20111216
  14. TOPROL-XL [Concomitant]
     Dosage: 25 MG, BID
     Route: 048
  15. LOTREL [Concomitant]
     Dosage: UNK
     Route: 048
     Dates: start: 20110325
  16. NORVASC [Concomitant]
     Dosage: 10 MG, QD
     Route: 048
     Dates: start: 20120109

REACTIONS (3)
  - DRUG INEFFECTIVE [None]
  - CHEST PAIN [None]
  - APLASIA PURE RED CELL [None]
